FAERS Safety Report 6660330-X (Version None)
Quarter: 2010Q1

REPORT INFORMATION
  Report Type: 
  Country: None (occurrence: None)
  Receive Date: 20100331
  Receipt Date: 20100317
  Transmission Date: 20100710
  Serious: Yes (Disabling)
  Sender: FDA-Public Use
  Company Number: NO-RANBAXY-2010RR-32640

PATIENT
  Sex: Male

DRUGS (9)
  1. SIMVASTATIN [Suspect]
     Route: 048
  2. ATACAND HCT [Suspect]
     Indication: HYPERTENSION
     Route: 048
  3. ALBYL-E [Concomitant]
     Route: 048
  4. PLAVIX [Concomitant]
     Route: 048
  5. CARDURAN CR [Concomitant]
     Route: 048
  6. AMLODIPINE [Concomitant]
     Route: 048
  7. BUMEX [Concomitant]
     Route: 048
  8. NEXIUM [Concomitant]
     Route: 048
  9. SELO-ZOK [Concomitant]
     Route: 048

REACTIONS (1)
  - INTERSTITIAL LUNG DISEASE [None]
